FAERS Safety Report 8327837-0 (Version None)
Quarter: 2012Q2

REPORT INFORMATION
  Report Type: 
  Country: None (occurrence: None)
  Receive Date: 20120502
  Receipt Date: 20120424
  Transmission Date: 20120825
  Serious: Yes (Hospitalization)
  Sender: FDA-Public Use
  Company Number: GB-SANOFI-AVENTIS-2012SA022117

PATIENT
  Age: 65 Year
  Sex: Male

DRUGS (12)
  1. PLACEBO [Suspect]
     Route: 065
  2. DIGOXIN [Concomitant]
  3. DABIGATRAN [Concomitant]
  4. GLIMEPIRIDE [Suspect]
     Route: 048
  5. AMLODIPINE [Concomitant]
  6. INSULIN [Concomitant]
  7. ALL OTHER THERAPEUTIC PRODUCTS [Concomitant]
  8. PRAVASTATIN [Concomitant]
  9. SODIUM CHLORIDE [Concomitant]
  10. ENALAPRIL MALEATE [Concomitant]
  11. METFORMIN HCL [Suspect]
     Route: 048
  12. ATORVASTATIN CALCIUM [Concomitant]

REACTIONS (1)
  - ANGINA UNSTABLE [None]
